FAERS Safety Report 9898444 (Version 1)
Quarter: 2014Q1

REPORT INFORMATION
  Report Type: Spontaneous
  Country: US (occurrence: US)
  Receive Date: 20140214
  Receipt Date: 20140214
  Transmission Date: 20141002
  Serious: Yes (Other)
  Sender: FDA-Public Use
  Company Number: US-PFIZER INC-2014039588

PATIENT
  Age: 50 Year
  Sex: Female
  Weight: 46.3 kg

DRUGS (8)
  1. PREMARIN [Suspect]
     Indication: HORMONE REPLACEMENT THERAPY
     Dosage: 0.6 MG, 1X/DAY
     Route: 048
  2. PREMARIN [Suspect]
     Dosage: 0.3 MG, 1X/DAY
     Route: 048
  3. LINZESS [Concomitant]
     Indication: IRRITABLE BOWEL SYNDROME
     Dosage: UNK, 1X/DAY
  4. DICYCLOMINE [Concomitant]
     Indication: IRRITABLE BOWEL SYNDROME
     Dosage: UNK, 3X/DAY
  5. XARELTO [Concomitant]
     Indication: ARRHYTHMIA
     Dosage: UNK, 1X/DAY
  6. PROPAFENONE [Concomitant]
     Indication: ARRHYTHMIA
     Dosage: UNK, EVERY 8 HOURS
  7. LISINOPRIL [Concomitant]
     Indication: HYPERTENSION
     Dosage: UNK
  8. DILTIAZEM [Concomitant]
     Indication: HYPERTENSION
     Dosage: UNK

REACTIONS (1)
  - Cardiac disorder [Unknown]
